FAERS Safety Report 13250581 (Version 3)
Quarter: 2017Q1

REPORT INFORMATION
  Report Type: Spontaneous
  Country: US (occurrence: US)
  Receive Date: 20170219
  Receipt Date: 20170317
  Transmission Date: 20170428
  Serious: Yes (Other)
  Sender: FDA-Public Use
  Company Number: US-AMGEN-USASP2017023736

PATIENT
  Age: 60 Year
  Sex: Female

DRUGS (3)
  1. ENBREL [Suspect]
     Active Substance: ETANERCEPT
     Dosage: UNK
     Route: 065
  2. ENBREL [Suspect]
     Active Substance: ETANERCEPT
     Indication: RHEUMATOID ARTHRITIS
     Dosage: 50 MG, QWK
     Route: 065
     Dates: start: 201612
  3. LEFLUNOMIDE. [Concomitant]
     Active Substance: LEFLUNOMIDE
     Dosage: UNK

REACTIONS (13)
  - Incorrect product storage [Unknown]
  - Stress [Unknown]
  - Fear of injection [Unknown]
  - Fatigue [Unknown]
  - Unevaluable event [Unknown]
  - Urinary tract infection [Unknown]
  - Rheumatoid arthritis [Unknown]
  - Sleep disorder [Unknown]
  - Memory impairment [Unknown]
  - Discomfort [Unknown]
  - Visual impairment [Unknown]
  - Musculoskeletal disorder [Unknown]
  - Urinary sediment present [Unknown]

NARRATIVE: CASE EVENT DATE: 2017
